FAERS Safety Report 16584442 (Version 1)
Quarter: 2019Q3

REPORT INFORMATION
  Report Type: Spontaneous
  Country: US (occurrence: US)
  Receive Date: 20190717
  Receipt Date: 20190717
  Transmission Date: 20191004
  Serious: No
  Sender: FDA-Public Use
  Company Number: US-BAYER-2019-133865

PATIENT

DRUGS (1)
  1. BILTRICIDE [Suspect]
     Active Substance: PRAZIQUANTEL
     Dosage: UNK

REACTIONS (1)
  - Gastrointestinal disorder [None]
